FAERS Safety Report 13759557 (Version 1)
Quarter: 2017Q3

REPORT INFORMATION
  Report Type: Report from Study
  Country: US (occurrence: US)
  Receive Date: 20170717
  Receipt Date: 20170717
  Transmission Date: 20171127
  Serious: Yes (Other)
  Sender: FDA-Public Use
  Company Number: US-TEVA-787267USA

PATIENT
  Age: 54 Year
  Sex: Male

DRUGS (4)
  1. AUSTEDO [Suspect]
     Active Substance: DEUTETRABENAZINE
     Indication: HUNTINGTON^S DISEASE
     Dosage: INITIAL START
     Route: 065
     Dates: start: 20170503
  2. HALDOL [Suspect]
     Active Substance: HALOPERIDOL
     Dosage: STARTED PRE AUSTEDO
     Route: 065
     Dates: end: 20170616
  3. AUSTEDO [Suspect]
     Active Substance: DEUTETRABENAZINE
     Dosage: WEEK 2
     Route: 065
     Dates: start: 201705
  4. AUSTEDO [Suspect]
     Active Substance: DEUTETRABENAZINE
     Dosage: 18 MILLIGRAM DAILY; WEEK 3, MAINTENANCE DOSE
     Route: 065
     Dates: start: 20170517, end: 20170616

REACTIONS (3)
  - Fall [Recovering/Resolving]
  - Balance disorder [Recovering/Resolving]
  - Speech disorder [Recovering/Resolving]

NARRATIVE: CASE EVENT DATE: 20170517
